FAERS Safety Report 6031683-0 (Version None)
Quarter: 2009Q1

REPORT INFORMATION
  Report Type: 
  Country: None (occurrence: None)
  Receive Date: 20090108
  Receipt Date: 20090105
  Transmission Date: 20090719
  Serious: Yes (Hospitalization)
  Sender: FDA-Public Use
  Company Number: A0746368A

PATIENT
  Age: 80 Year
  Sex: Female

DRUGS (2)
  1. LANOXIN [Suspect]
     Indication: DRUG USE FOR UNKNOWN INDICATION
     Route: 048
     Dates: start: 19960101, end: 20070201
  2. GLARGINE [Suspect]
     Indication: DIABETES MELLITUS
     Dosage: 30UNIT PER DAY
     Route: 058
     Dates: start: 20060101

REACTIONS (6)
  - ABASIA [None]
  - ALOPECIA [None]
  - BLOOD GLUCOSE DECREASED [None]
  - DIZZINESS [None]
  - NIGHT SWEATS [None]
  - THERAPEUTIC AGENT TOXICITY [None]
